FAERS Safety Report 18340828 (Version 2)
Quarter: 2020Q4

REPORT INFORMATION
  Report Type: Spontaneous
  Country: DE (occurrence: DE)
  Receive Date: 20201003
  Receipt Date: 20201013
  Transmission Date: 20210113
  Serious: Yes (Other)
  Sender: FDA-Public Use
  Company Number: DE-SUN PHARMACEUTICAL INDUSTRIES LTD-2020RR-262955

PATIENT
  Age: 79 Year
  Sex: Male
  Weight: 65 kg

DRUGS (18)
  1. LAMOTRIGIN [Suspect]
     Active Substance: LAMOTRIGINE
     Dosage: 200 MILLIGRAM, BID, 200 - 0 - 200
     Route: 065
  2. ZOPICLODURA 7,5 MG FILMTABLETTEN [Concomitant]
     Indication: SLEEP DISORDER
     Dosage: 7.5 MICROGRAM, AS NECESSARY
     Route: 065
  3. SIMVA BASICS 20 MG FILMTABLETTEN [Concomitant]
     Indication: BLOOD CHOLESTEROL
     Dosage: 0-0-1FOR OR AFTER EATING
     Route: 065
  4. LAMOTRIGIN [Suspect]
     Active Substance: LAMOTRIGINE
     Dosage: 75-0-75MG
     Route: 065
     Dates: start: 20170207
  5. GLIVEC 400 MG FILMTABLETTEN [Concomitant]
     Indication: CHRONIC MYELOID LEUKAEMIA
     Dosage: 100 MILLIGRAM, QID, 4X100MG/TAG
     Route: 065
     Dates: start: 20020211
  6. LAMOTRIGIN [Suspect]
     Active Substance: LAMOTRIGINE
     Dosage: 100-0-100MG
     Route: 065
     Dates: start: 20171107
  7. LAMOTRIGIN [Suspect]
     Active Substance: LAMOTRIGINE
     Dosage: 125-0-125
     Route: 065
     Dates: start: 20171220
  8. TASIGNA [Concomitant]
     Active Substance: NILOTINIB
     Indication: PRODUCT USED FOR UNKNOWN INDICATION
     Dosage: 200 MILLIGRAM, DAILY
     Route: 065
     Dates: start: 201310
  9. GLIVEC 400 MG FILMTABLETTEN [Concomitant]
     Dosage: 0-0-400
     Route: 065
     Dates: start: 20140701, end: 20141222
  10. LAMOTRIGIN [Suspect]
     Active Substance: LAMOTRIGINE
     Dosage: 0-0-25
     Route: 065
     Dates: start: 20120626
  11. RAMIPRIL-ISIS 2,5 MG TABLETTEN [Concomitant]
     Active Substance: RAMIPRIL
     Indication: BLOOD PRESSURE MEASUREMENT
     Dosage: BEFORE OR AFTER EATING
     Route: 065
     Dates: start: 20190705
  12. LEVETIRACETAM. [Suspect]
     Active Substance: LEVETIRACETAM
     Indication: EPILEPSY
     Dosage: 1500 MILLIGRAM, DAILY, 500 - 0 - 1000
     Route: 048
  13. LAMOTRIGIN [Suspect]
     Active Substance: LAMOTRIGINE
     Indication: EPILEPSY
     Dosage: 150-0-1150MG
     Route: 065
     Dates: start: 20180211
  14. LAMOTRIGIN [Suspect]
     Active Substance: LAMOTRIGINE
     Dosage: 25 - 25 - 25MG
     Route: 065
     Dates: start: 20161108
  15. ASS ABZ PROTECT 100 MG MAGENSAFTRESISTENTE TABLETTEN [Concomitant]
     Indication: PROPHYLAXIS
     Dosage: 100 MILLIGRAM, DAILY, 1-0-0 AFTER EATING
     Route: 065
  16. TAVOR EXPIDET 1,0 TAFELCHEN [Concomitant]
     Indication: PRODUCT USED FOR UNKNOWN INDICATION
     Dosage: 1 MILLIGRAM, ONLY IN CASE OF EMERGENCY IN THE EVENT OF AN ATTACK ; AS NECESSARY
     Route: 065
  17. LEVETIRACETAM. [Suspect]
     Active Substance: LEVETIRACETAM
     Indication: EPILEPSY
     Dosage: 500 - 0 - 750MG/TAG ()
     Route: 048
     Dates: start: 20190913
  18. LEVETIRACETAM. [Suspect]
     Active Substance: LEVETIRACETAM
     Dosage: 1250 MILLIGRAM, DAILY, 500-0-750
     Route: 065

REACTIONS (7)
  - Basal cell carcinoma [Not Recovered/Not Resolved]
  - Depression [Not Recovered/Not Resolved]
  - Vertigo positional [Not Recovered/Not Resolved]
  - Fatigue [Not Recovered/Not Resolved]
  - Gait disturbance [Not Recovered/Not Resolved]
  - Dizziness [Not Recovered/Not Resolved]
  - Adverse reaction [Unknown]

NARRATIVE: CASE EVENT DATE: 20190920
